FAERS Safety Report 20844923 (Version 2)
Quarter: 2022Q2

REPORT INFORMATION
  Report Type: Spontaneous
  Country: BR (occurrence: BR)
  Receive Date: 20220518
  Receipt Date: 20220613
  Transmission Date: 20220721
  Serious: Yes (Other)
  Sender: FDA-Public Use
  Company Number: BR-PFIZER INC-2020363014

PATIENT
  Age: 75 Year
  Sex: Female
  Weight: 58 kg

DRUGS (7)
  1. XALATAN [Suspect]
     Active Substance: LATANOPROST
     Indication: Glaucoma
     Dosage: 1 DROP (ONLY IN THE RIGHT EYE (MORE THAN 10 -16 YEARS AGO)
     Route: 047
  2. XALATAN [Suspect]
     Active Substance: LATANOPROST
     Dosage: UNK (ONLY IN THE RIGHT EYE)
     Route: 047
  3. XALATAN [Suspect]
     Active Substance: LATANOPROST
     Dosage: 1 DROP IN THE RIGHT EYE
     Route: 047
  4. XALATAN [Suspect]
     Active Substance: LATANOPROST
     Dosage: 1 DROP IN THE RIGHT EYE
     Route: 047
  5. LIPITOR [Concomitant]
     Active Substance: ATORVASTATIN CALCIUM
     Dosage: UNK
  6. NORVASC [Concomitant]
     Active Substance: AMLODIPINE BESYLATE
     Dosage: UNK
  7. OLMESARTAN MEDOXOMIL [Concomitant]
     Active Substance: OLMESARTAN MEDOXOMIL
     Dosage: UNK

REACTIONS (6)
  - Cataract [Unknown]
  - Glaucoma surgery [Unknown]
  - Skin disorder [Unknown]
  - Visual impairment [Unknown]
  - Product delivery mechanism issue [Unknown]
  - Incorrect dose administered [Unknown]

NARRATIVE: CASE EVENT DATE: 20200301
